FAERS Safety Report 15032495 (Version 1)
Quarter: 2018Q2

REPORT INFORMATION
  Report Type: Report from Study
  Country: None (occurrence: US)
  Receive Date: 20180619
  Receipt Date: 20180619
  Transmission Date: 20180711
  Serious: Yes (Other)
  Sender: FDA-Public Use
  Company Number: US-BAUSCH-BL-2018-017093

PATIENT
  Sex: Female

DRUGS (1)
  1. LIBRAX [Suspect]
     Active Substance: CHLORDIAZEPOXIDE HYDROCHLORIDE\CLIDINIUM BROMIDE
     Indication: PRODUCT USED FOR UNKNOWN INDICATION
     Dosage: 5 MG/2.5 MG
     Route: 065

REACTIONS (6)
  - Facial bones fracture [Unknown]
  - Ligament injury [Unknown]
  - Fall [Unknown]
  - Joint injury [Unknown]
  - Hyperacusis [Unknown]
  - Adverse event [Unknown]
